FAERS Safety Report 23150652 (Version 1)
Quarter: 2023Q4

REPORT INFORMATION
  Report Type: Spontaneous
  Country: US (occurrence: None)
  Receive Date: 20231103
  Receipt Date: 20231103
  Transmission Date: 20240109
  Serious: Yes (Hospitalization)
  Sender: FDA-Public Use
  Company Number: None

PATIENT
  Age: 40 Year
  Sex: Female

DRUGS (23)
  1. TEZSPIRE [Suspect]
     Active Substance: TEZEPELUMAB-EKKO
     Indication: Asthma
     Dosage: OTHER QUANTITY : 210 MG/1.91ML;?FREQUENCY : MONTHLY;?
     Route: 058
     Dates: start: 20230125
  2. TEZSPIRE [Suspect]
     Active Substance: TEZEPELUMAB-EKKO
     Dosage: OTHER QUANTITY : 1 SYRINGE;?FREQUENCY : MONTHLY;?
     Route: 058
  3. ADVAIR HFA AER [Concomitant]
  4. ALBUTEROL AER HFA [Concomitant]
  5. AZELASTINE SPR [Concomitant]
  6. VITAMIN B COMPLEX [Concomitant]
     Active Substance: CYANOCOBALAMIN\DEXPANTHENOL\NIACINAMIDE\PYRIDOXINE HYDROCHLORIDE\RIBOFLAVIN 5^-PHOSPHATE SODIUM\THIA
  7. BREO ELLIPTA [Concomitant]
  8. CALCIUM CARBONATE [Concomitant]
     Active Substance: CALCIUM CARBONATE
  9. CLARITIN [Concomitant]
  10. FAMOTIDINE [Concomitant]
  11. FLONASE ALGY SPR [Concomitant]
  12. LISINOPRIL [Concomitant]
  13. METHOCARBAM [Concomitant]
  14. METHYLPREDNISOLONE [Concomitant]
     Active Substance: METHYLPREDNISOLONE
  15. MONTELUKAST [Concomitant]
     Active Substance: MONTELUKAST SODIUM
  16. MULTIVITAMIN  WOMENS [Concomitant]
  17. NAPROXEN [Concomitant]
     Active Substance: NAPROXEN
  18. PREDNISONE [Concomitant]
  19. PROPRANOLOL [Concomitant]
  20. SPIRIVA [Concomitant]
     Active Substance: TIOTROPIUM BROMIDE MONOHYDRATE
  21. TRELEGY AER [Concomitant]
  22. VITAMIN C [Concomitant]
  23. ZYRTEC [Concomitant]
     Active Substance: CETIRIZINE HYDROCHLORIDE

REACTIONS (2)
  - Asthma [None]
  - Drug ineffective [None]

NARRATIVE: CASE EVENT DATE: 20231001
